FAERS Safety Report 7578396-1 (Version None)
Quarter: 2011Q2

REPORT INFORMATION
  Report Type: 
  Country: None (occurrence: None)
  Receive Date: 20110628
  Receipt Date: 20110620
  Transmission Date: 20111010
  Serious: Yes (Death)
  Sender: FDA-Public Use
  Company Number: JP-ACTELION-A-CH2011-50593

PATIENT
  Age: 87 Year
  Sex: Male

DRUGS (3)
  1. OXYGEN [Concomitant]
  2. VALSARTAN [Concomitant]
  3. TRACLEER [Suspect]
     Indication: PULMONARY HYPERTENSION
     Dosage: 62.5 MG, BID
     Route: 048
     Dates: start: 20110613, end: 20110614

REACTIONS (3)
  - CONDITION AGGRAVATED [None]
  - CHRONIC RESPIRATORY FAILURE [None]
  - HYPOTENSION [None]
